FAERS Safety Report 25525767 (Version 1)
Quarter: 2025Q3

REPORT INFORMATION
  Report Type: Spontaneous
  Country: TW (occurrence: TW)
  Receive Date: 20250707
  Receipt Date: 20250707
  Transmission Date: 20251021
  Serious: Yes (Life-Threatening, Other)
  Sender: FRESENIUS KABI
  Company Number: TW-FreseniusKabi-FK202509032

PATIENT
  Age: 73 Year
  Sex: Male
  Weight: 80 kg

DRUGS (12)
  1. CISPLATIN [Suspect]
     Active Substance: CISPLATIN
     Indication: Bladder cancer
     Route: 042
     Dates: start: 20250410, end: 20250417
  2. CISPLATIN [Suspect]
     Active Substance: CISPLATIN
     Route: 042
     Dates: start: 20250424
  3. CISPLATIN [Suspect]
     Active Substance: CISPLATIN
     Route: 042
     Dates: start: 20250508
  4. CISPLATIN [Suspect]
     Active Substance: CISPLATIN
     Route: 042
     Dates: start: 20250515
  5. CISPLATIN [Suspect]
     Active Substance: CISPLATIN
     Route: 042
     Dates: start: 20250522
  6. CISPLATIN [Suspect]
     Active Substance: CISPLATIN
     Route: 042
     Dates: start: 20250605, end: 20250626
  7. GEMCITABINE [Concomitant]
     Active Substance: GEMCITABINE
     Indication: Bladder cancer
     Route: 042
     Dates: start: 20250410, end: 20250417
  8. GEMCITABINE [Concomitant]
     Active Substance: GEMCITABINE
     Route: 042
     Dates: start: 20250424
  9. GEMCITABINE [Concomitant]
     Active Substance: GEMCITABINE
     Route: 042
     Dates: start: 20250508
  10. GEMCITABINE [Concomitant]
     Active Substance: GEMCITABINE
     Route: 042
     Dates: start: 20250515
  11. GEMCITABINE [Concomitant]
     Active Substance: GEMCITABINE
     Route: 042
     Dates: start: 20250522
  12. GEMCITABINE [Concomitant]
     Active Substance: GEMCITABINE
     Route: 042
     Dates: start: 20250605, end: 20250626

REACTIONS (1)
  - Anaphylactic shock [Recovered/Resolved]

NARRATIVE: CASE EVENT DATE: 20250626
